FAERS Safety Report 7539055-4 (Version None)
Quarter: 2011Q2

REPORT INFORMATION
  Report Type: 
  Country: None (occurrence: None)
  Receive Date: 20110610
  Receipt Date: 20010102
  Transmission Date: 20111010
  Serious: Yes (Death, Other)
  Sender: FDA-Public Use
  Company Number: PHFR2000GB01292

PATIENT
  Sex: Male
  Weight: 60 kg

DRUGS (2)
  1. RISPERIDONE [Concomitant]
  2. CLOZARIL [Suspect]
     Indication: SCHIZOPHRENIA
     Dosage: 75 MG, DAILY
     Route: 048
     Dates: start: 20000714, end: 20000818

REACTIONS (4)
  - CARDIAC ARREST [None]
  - SUBARACHNOID HAEMORRHAGE [None]
  - LOSS OF CONSCIOUSNESS [None]
  - FATIGUE [None]
